FAERS Safety Report 19086531 (Version 6)
Quarter: 2023Q1

REPORT INFORMATION
  Report Type: Spontaneous
  Country: US (occurrence: US)
  Receive Date: 20210402
  Receipt Date: 20230103
  Transmission Date: 20230417
  Serious: Yes (Other)
  Sender: FDA-Public Use
  Company Number: US-DRREDDYS-USA/USA/21/0133439

PATIENT
  Age: 29 Year
  Sex: Female

DRUGS (1)
  1. ZENATANE [Suspect]
     Active Substance: ISOTRETINOIN
     Indication: Product used for unknown indication
     Dosage: RMA ISSUE DATE: 11 SEPTEMBER 2020 6:14:54 PM, 12 AUGUST 2020 3:52:46 PM.
     Route: 048
     Dates: start: 20201108, end: 20201211

REACTIONS (5)
  - Live birth [Recovered/Resolved]
  - Placental disorder [Recovered/Resolved]
  - Subchorionic haemorrhage [Recovered/Resolved]
  - Anaemia [Not Recovered/Not Resolved]
  - Exposure during pregnancy [Recovered/Resolved]

NARRATIVE: CASE EVENT DATE: 20210101
